FAERS Safety Report 25961935 (Version 1)
Quarter: 2025Q4

REPORT INFORMATION
  Report Type: Spontaneous
  Country: CA (occurrence: CA)
  Receive Date: 20251027
  Receipt Date: 20251027
  Transmission Date: 20260117
  Serious: Yes (Other)
  Sender: BIOVITRUM
  Company Number: CA-BIOVITRUM-2025-CA-014554

PATIENT
  Sex: Male

DRUGS (1)
  1. GAMIFANT [Suspect]
     Active Substance: EMAPALUMAB-LZSG
     Indication: Product used for unknown indication

REACTIONS (7)
  - Respiratory failure [Unknown]
  - Bone marrow transplant rejection [Unknown]
  - Interferon gamma decreased [Unknown]
  - Bone marrow failure [Unknown]
  - Pyrexia [Unknown]
  - Cytokine abnormal [Unknown]
  - Infection [Not Recovered/Not Resolved]
